FAERS Safety Report 9156740 (Version 2)
Quarter: 2013Q2

REPORT INFORMATION
  Report Type: Spontaneous
  Country: BE (occurrence: BE)
  Receive Date: 20130312
  Receipt Date: 20130412
  Transmission Date: 20140414
  Serious: Yes (Other)
  Sender: FDA-Public Use
  Company Number: BE-ELI_LILLY_AND_COMPANY-BE201303000225

PATIENT
  Age: 82 Year
  Sex: Female

DRUGS (1)
  1. YENTREVE [Suspect]
     Indication: INCONTINENCE
     Dosage: 40 MG, BID
     Dates: start: 20120918, end: 20120922

REACTIONS (11)
  - Loss of consciousness [Recovered/Resolved]
  - Muscular weakness [Recovered/Resolved]
  - Dysstasia [Recovered/Resolved]
  - Abasia [Recovered/Resolved]
  - Blood pressure inadequately controlled [Recovered/Resolved]
  - Memory impairment [Not Recovered/Not Resolved]
  - Dysgraphia [Unknown]
  - Decreased appetite [Recovered/Resolved]
  - Headache [Recovered/Resolved]
  - Tremor [Unknown]
  - Confusional state [Recovered/Resolved]
